FAERS Safety Report 6856079-0 (Version None)
Quarter: 2010Q3

REPORT INFORMATION
  Report Type: 
  Country: None (occurrence: None)
  Receive Date: 20100715
  Receipt Date: 20100715
  Transmission Date: 20110219
  Serious: Yes (Life-Threatening, Disabling)
  Sender: FDA-Public Use
  Company Number: None

PATIENT
  Age: 40 Year
  Sex: Male
  Weight: 97.5234 kg

DRUGS (1)
  1. BUSPAR [Suspect]
     Indication: ANXIETY
     Dosage: 10 MILLIGRAMS 2 TIMES A DAY PO
     Route: 048
     Dates: start: 20100707, end: 20100714

REACTIONS (5)
  - CHEST PAIN [None]
  - DYSPNOEA [None]
  - PARAESTHESIA [None]
  - TACHYCARDIA [None]
  - VISION BLURRED [None]
